FAERS Safety Report 9052691 (Version 1)
Quarter: 2013Q1

REPORT INFORMATION
  Report Type: Spontaneous
  Country: US (occurrence: US)
  Receive Date: 20130207
  Receipt Date: 20130207
  Transmission Date: 20140127
  Serious: Yes (Other)
  Sender: FDA-Public Use
  Company Number: US-ROXANE LABORATORIES, INC.-2013-RO-00199RO

PATIENT
  Age: 46 Year
  Sex: Female

DRUGS (7)
  1. METHOTREXATE [Suspect]
     Indication: OCULAR SARCOIDOSIS
  2. PREDNISONE [Suspect]
     Indication: OCULAR SARCOIDOSIS
     Dosage: 60 MG
  3. PREDNISONE [Suspect]
     Dosage: 10 MG
  4. DEXAMETHASONE [Suspect]
     Indication: PREMEDICATION
  5. PARACETAMOL [Suspect]
     Indication: PREMEDICATION
  6. RITUXIMAB [Suspect]
     Indication: OCULAR SARCOIDOSIS
     Route: 042
  7. RITUXIMAB [Suspect]
     Route: 042

REACTIONS (2)
  - Neutropenia [Recovered/Resolved]
  - No therapeutic response [Unknown]
